FAERS Safety Report 12495495 (Version 3)
Quarter: 2016Q3

REPORT INFORMATION
  Report Type: Spontaneous
  Country: GB (occurrence: GB)
  Receive Date: 20160624
  Receipt Date: 20160726
  Transmission Date: 20161109
  Serious: Yes (Other)
  Sender: FDA-Public Use
  Company Number: GB-AMGEN-GBRSP2016079187

PATIENT
  Age: 75 Year
  Sex: Female

DRUGS (1)
  1. PROLIA [Suspect]
     Active Substance: DENOSUMAB
     Indication: OSTEOPOROSIS
     Dosage: 60 MG, Q6MO
     Route: 065
     Dates: start: 201509

REACTIONS (5)
  - Hypercalcaemia [Unknown]
  - Renal failure [Unknown]
  - Blood parathyroid hormone decreased [Unknown]
  - Hypocalcaemia [Unknown]
  - Blood parathyroid hormone increased [Unknown]

NARRATIVE: CASE EVENT DATE: 201602
